FAERS Safety Report 9512423 (Version 1)
Quarter: 2013Q1

REPORT INFORMATION
  Report Type: Spontaneous
  Country: US (occurrence: None)
  Receive Date: 20130305
  Receipt Date: 20130305
  Transmission Date: 20140127
  Serious: Yes (Other)
  Sender: FDA-Public Use
  Company Number: 163-21880-12091844

PATIENT
  Age: 71 Year
  Sex: Female

DRUGS (2)
  1. REVLIMID (LENALIDOMIDE) (CAPSULES) [Suspect]
     Indication: PLASMA CELL MYELOMA
     Dosage: 15 MG,  14 IN 14 D, PO
     Dates: start: 20110630
  2. VITAMIN B COMPLEX (B-KOMPLEX ^LECIVA^) (UNKONWN_ [Concomitant]

REACTIONS (1)
  - Liver disorder [None]
